FAERS Safety Report 13738235 (Version 3)
Quarter: 2017Q3

REPORT INFORMATION
  Report Type: Spontaneous
  Country: JP (occurrence: JP)
  Receive Date: 20170710
  Receipt Date: 20170809
  Transmission Date: 20171127
  Serious: Yes (Hospitalization, Other)
  Sender: FDA-Public Use
  Company Number: JP-SA-2017SA122380

PATIENT
  Age: 48 Year
  Sex: Female

DRUGS (8)
  1. EPIRUBICIN [Suspect]
     Active Substance: EPIRUBICIN
     Indication: INVASIVE DUCTAL BREAST CARCINOMA
     Route: 065
  2. FLUOROURACIL. [Suspect]
     Active Substance: FLUOROURACIL
     Indication: INVASIVE DUCTAL BREAST CARCINOMA
     Route: 065
  3. DOCETAXEL. [Suspect]
     Active Substance: DOCETAXEL
     Indication: INVASIVE DUCTAL BREAST CARCINOMA
     Route: 065
  4. CYCLOPHOSPHAMIDE. [Suspect]
     Active Substance: CYCLOPHOSPHAMIDE
     Indication: INVASIVE DUCTAL BREAST CARCINOMA
     Route: 065
  5. CYCLOPHOSPHAMIDE. [Suspect]
     Active Substance: CYCLOPHOSPHAMIDE
     Indication: INVASIVE DUCTAL BREAST CARCINOMA
     Route: 065
  6. URACIL/TEGAFUR [Suspect]
     Active Substance: TEGAFUR\URACIL
     Indication: INVASIVE DUCTAL BREAST CARCINOMA
     Route: 048
  7. TRASTUZUMAB. [Suspect]
     Active Substance: TRASTUZUMAB
     Indication: INVASIVE DUCTAL BREAST CARCINOMA
     Route: 065
  8. TRASTUZUMAB. [Suspect]
     Active Substance: TRASTUZUMAB
     Indication: INVASIVE DUCTAL BREAST CARCINOMA
     Route: 065

REACTIONS (26)
  - Oedema peripheral [Recovered/Resolved]
  - Heart rate increased [Recovered/Resolved]
  - Sinus tachycardia [Recovered/Resolved]
  - Cardiac failure [Recovered/Resolved]
  - Left ventricular dysfunction [Recovered/Resolved]
  - Tricuspid valve incompetence [Recovered/Resolved]
  - Left ventricular dilatation [Recovered/Resolved]
  - Pleural effusion [Recovered/Resolved]
  - Ejection fraction decreased [Recovered/Resolved]
  - Hypokinesia [Recovered/Resolved]
  - Cerebral infarction [Recovered/Resolved]
  - Fibrin degradation products increased [Recovered/Resolved]
  - Blood lactate dehydrogenase increased [Recovered/Resolved]
  - Rales [Recovered/Resolved]
  - Cardiomyopathy [Recovered/Resolved]
  - Cardiomegaly [Recovered/Resolved]
  - Cardiotoxicity [Recovered/Resolved]
  - Dyspnoea [Recovered/Resolved]
  - Oedema [Recovered/Resolved]
  - Activated partial thromboplastin time shortened [Recovered/Resolved]
  - Fibrin D dimer increased [Recovered/Resolved]
  - Pulmonary congestion [Recovered/Resolved]
  - Brain natriuretic peptide increased [Recovered/Resolved]
  - Blood pressure systolic decreased [Recovered/Resolved]
  - Mitral valve incompetence [Recovered/Resolved]
  - Intracardiac thrombus [Recovered/Resolved]
